FAERS Safety Report 6982481-2 (Version None)
Quarter: 2010Q3

REPORT INFORMATION
  Report Type: 
  Country: None (occurrence: None)
  Receive Date: 20100914
  Receipt Date: 20100125
  Transmission Date: 20110219
  Serious: No
  Sender: FDA-Public Use
  Company Number: US-PFIZER INC-2010011083

PATIENT
  Sex: Female
  Weight: 122 kg

DRUGS (8)
  1. LYRICA [Suspect]
     Indication: FIBROMYALGIA
     Dosage: UNK
     Dates: start: 20091022, end: 20100101
  2. PROZAC [Concomitant]
     Dosage: 40 MG, 1X/DAY
  3. NAPROXEN [Concomitant]
     Dosage: 500 MG, 2X/DAY
  4. ZANAFLEX [Concomitant]
     Dosage: 8 MG, 2X/DAY
  5. ELAVIL [Concomitant]
     Dosage: 100 MG, 2X/DAY
  6. MIRAPEX [Concomitant]
     Dosage: 0.125 MG, 1X/DAY
  7. AMBIEN [Concomitant]
     Dosage: 10 MG, 1X/DAY
  8. KETOROLAC [Concomitant]
     Dosage: 10 MG, 2X/DAY

REACTIONS (1)
  - PAIN [None]
